FAERS Safety Report 18324144 (Version 4)
Quarter: 2021Q1

REPORT INFORMATION
  Report Type: Report from Study
  Country: CO (occurrence: CO)
  Receive Date: 20200929
  Receipt Date: 20210218
  Transmission Date: 20210419
  Serious: Yes (Other)
  Sender: FDA-Public Use
  Company Number: NVSC2020CO093941

PATIENT
  Age: 51 Year
  Sex: Female
  Weight: 47 kg

DRUGS (78)
  1. TYKERB [Suspect]
     Active Substance: LAPATINIB DITOSYLATE
     Dosage: 1000 MG, QD
     Route: 048
     Dates: start: 20190211
  2. FULVESTRANT. [Suspect]
     Active Substance: FULVESTRANT
     Indication: METASTASES TO BONE
     Dosage: 500 MG, QMO
     Route: 030
     Dates: start: 2013
  3. FULVESTRANT. [Suspect]
     Active Substance: FULVESTRANT
     Dosage: 500 MG, QMO
     Route: 030
     Dates: start: 20190815
  4. TRASTUZUMAB. [Concomitant]
     Active Substance: TRASTUZUMAB
     Dosage: 600 MG (EVERY 21 DAYS)
     Route: 058
     Dates: start: 20181213
  5. TRASTUZUMAB. [Concomitant]
     Active Substance: TRASTUZUMAB
     Dosage: 600 MG (EVERY 21 DAYS)
     Route: 058
     Dates: start: 20190719
  6. TRASTUZUMAB. [Concomitant]
     Active Substance: TRASTUZUMAB
     Dosage: 600 MG (EVERY 21 DAYS)
     Route: 058
     Dates: start: 20190719
  7. TRASTUZUMAB. [Concomitant]
     Active Substance: TRASTUZUMAB
     Dosage: 600 MG (EVERY 21 DAYS)
     Route: 058
     Dates: start: 20200316
  8. ESOMEPRAZOLE. [Concomitant]
     Active Substance: ESOMEPRAZOLE MAGNESIUM
     Indication: PRODUCT USED FOR UNKNOWN INDICATION
     Dosage: 20 MG, QD
     Route: 048
  9. DEXAMETHASONE. [Concomitant]
     Active Substance: DEXAMETHASONE
     Indication: PRODUCT USED FOR UNKNOWN INDICATION
     Dosage: 16 MG, QD
     Route: 042
  10. TYKERB [Suspect]
     Active Substance: LAPATINIB DITOSYLATE
     Indication: BREAST CANCER
     Dosage: 1250 MG, QD (4 TABLET)
     Route: 048
     Dates: start: 20170727, end: 202001
  11. FULVESTRANT. [Suspect]
     Active Substance: FULVESTRANT
     Dosage: 500 MG, QMO
     Route: 030
     Dates: start: 20190328
  12. FULVESTRANT. [Suspect]
     Active Substance: FULVESTRANT
     Dosage: 500 ML, QMO (EVERY 28 DAYS)
     Route: 058
     Dates: start: 2018
  13. TRASTUZUMAB. [Concomitant]
     Active Substance: TRASTUZUMAB
     Dosage: 600 MG (EVERY 21 DAYS)
     Route: 058
     Dates: start: 2013
  14. VITAMIN D [Concomitant]
     Active Substance: VITAMIN D NOS
     Indication: PRODUCT USED FOR UNKNOWN INDICATION
     Dosage: UNK
     Route: 065
     Dates: start: 20161207
  15. NACL [Concomitant]
     Active Substance: SODIUM CHLORIDE
     Indication: PRODUCT USED FOR UNKNOWN INDICATION
     Dosage: 500 ML (EVERY 30 DAYS)
     Route: 042
  16. TYKERB [Suspect]
     Active Substance: LAPATINIB DITOSYLATE
     Dosage: 1000 MG, QD
     Route: 048
     Dates: start: 20180515
  17. TYKERB [Suspect]
     Active Substance: LAPATINIB DITOSYLATE
     Dosage: 1000 MG, QD
     Route: 048
     Dates: start: 20190110
  18. FULVESTRANT. [Suspect]
     Active Substance: FULVESTRANT
     Dosage: 500 MG, QMO
     Route: 030
     Dates: start: 20180612
  19. FULVESTRANT. [Suspect]
     Active Substance: FULVESTRANT
     Dosage: 500 ML, QMO (EVERY 28 DAYS)
     Route: 030
     Dates: start: 2018
  20. FULVESTRANT. [Suspect]
     Active Substance: FULVESTRANT
     Dosage: 500 MG, QMO
     Route: 030
     Dates: start: 20190623
  21. TRASTUZUMAB. [Concomitant]
     Active Substance: TRASTUZUMAB
     Indication: METASTASES TO BONE
     Dosage: 600 ML, QMO (EVERY 28 DAYS)
     Route: 065
     Dates: start: 2010
  22. TRASTUZUMAB. [Concomitant]
     Active Substance: TRASTUZUMAB
     Dosage: 600 MG (EVERY 21 DAYS)
     Route: 058
     Dates: start: 20180917
  23. TRASTUZUMAB. [Concomitant]
     Active Substance: TRASTUZUMAB
     Dosage: 600 MG (EVERY 21 DAYS)
     Route: 058
     Dates: start: 20181008
  24. TRASTUZUMAB. [Concomitant]
     Active Substance: TRASTUZUMAB
     Dosage: 600 MG (EVERY 21 DAYS)
     Route: 058
     Dates: start: 20190918
  25. FULVESTRANT. [Suspect]
     Active Substance: FULVESTRANT
     Dosage: 500 MG, QMO
     Route: 030
     Dates: start: 20190815
  26. FULVESTRANT. [Suspect]
     Active Substance: FULVESTRANT
     Dosage: 500 MG, QMO
     Route: 030
     Dates: start: 20191025
  27. TRASTUZUMAB. [Concomitant]
     Active Substance: TRASTUZUMAB
     Dosage: 600 MG (EVERY 21 DAYS)
     Route: 058
     Dates: start: 20190110
  28. TRASTUZUMAB. [Concomitant]
     Active Substance: TRASTUZUMAB
     Dosage: 600 MG (EVERY 21 DAYS)
     Route: 058
     Dates: start: 20190527
  29. CALCITRIOL. [Concomitant]
     Active Substance: CALCITRIOL
     Indication: PRODUCT USED FOR UNKNOWN INDICATION
     Dosage: UNK
     Route: 065
     Dates: start: 20170127
  30. IMPRAMINE [Concomitant]
     Active Substance: IMIPRAMINE
     Indication: PAIN
     Dosage: 25 MG, QD
     Route: 065
     Dates: start: 2019
  31. TYKERB [Suspect]
     Active Substance: LAPATINIB DITOSYLATE
     Dosage: 1000 MG, QD (4 TABLETS /1000 MG AT FAST)
     Route: 048
     Dates: start: 2018
  32. TYKERB [Suspect]
     Active Substance: LAPATINIB DITOSYLATE
     Dosage: 1000 MG, QD
     Route: 048
     Dates: start: 20181213
  33. TYKERB [Suspect]
     Active Substance: LAPATINIB DITOSYLATE
     Dosage: 1000 MG, QD
     Route: 048
     Dates: start: 20190623
  34. FULVESTRANT. [Suspect]
     Active Substance: FULVESTRANT
     Dosage: 500 MG, QMO
     Route: 030
     Dates: start: 20190731
  35. FULVESTRANT. [Suspect]
     Active Substance: FULVESTRANT
     Dosage: 500 MG, QMO
     Route: 030
     Dates: start: 20191211
  36. TRASTUZUMAB. [Concomitant]
     Active Substance: TRASTUZUMAB
     Dosage: 600 MG (EVERY 21 DAYS)
     Route: 058
     Dates: start: 20180827
  37. TRASTUZUMAB. [Concomitant]
     Active Substance: TRASTUZUMAB
     Dosage: 600 MG (EVERY 21 DAYS)
     Route: 058
     Dates: start: 20181113
  38. TRASTUZUMAB. [Concomitant]
     Active Substance: TRASTUZUMAB
     Dosage: 600 MG (EVERY 21 DAYS)
     Route: 058
     Dates: start: 20190211
  39. TRASTUZUMAB. [Concomitant]
     Active Substance: TRASTUZUMAB
     Dosage: 600 MG (EVERY 21 DAYS)
     Route: 058
     Dates: start: 20190623
  40. OXYCODONE [Concomitant]
     Active Substance: OXYCODONE
     Indication: PRODUCT USED FOR UNKNOWN INDICATION
     Dosage: UNK
     Route: 065
  41. ESOMEPRAZOLE. [Concomitant]
     Active Substance: ESOMEPRAZOLE MAGNESIUM
     Dosage: 600 MG, QD
     Route: 048
  42. TYKERB [Suspect]
     Active Substance: LAPATINIB DITOSYLATE
     Dosage: 1000 MG, QD
     Route: 048
     Dates: start: 20180716
  43. TYKERB [Suspect]
     Active Substance: LAPATINIB DITOSYLATE
     Dosage: 1000 MG, QMO
     Route: 048
     Dates: start: 20180716
  44. TYKERB [Suspect]
     Active Substance: LAPATINIB DITOSYLATE
     Dosage: 1000 MG, QD
     Route: 048
  45. TYKERB [Suspect]
     Active Substance: LAPATINIB DITOSYLATE
     Dosage: 1000 MG, QD
     Route: 048
     Dates: start: 20190328
  46. TYKERB [Suspect]
     Active Substance: LAPATINIB DITOSYLATE
     Dosage: 1250 MG, QD (4 TABLET)
     Route: 048
     Dates: end: 202002
  47. TYKERB [Suspect]
     Active Substance: LAPATINIB DITOSYLATE
     Dosage: UNK, QD (DAILY AT FASTING)
     Route: 048
     Dates: start: 202011, end: 202012
  48. LETROZOLE. [Suspect]
     Active Substance: LETROZOLE
     Indication: PRODUCT USED FOR UNKNOWN INDICATION
     Dosage: UNK
     Route: 065
  49. ZOLEDRONIC ACID [Suspect]
     Active Substance: ZOLEDRONIC ACID
     Indication: METASTASES TO BONE
     Dosage: EVERY 3 MONTHS
     Route: 058
     Dates: start: 2013
  50. FULVESTRANT. [Suspect]
     Active Substance: FULVESTRANT
     Dosage: 500 MG, QMO
     Route: 030
     Dates: start: 20170404, end: 20170518
  51. FULVESTRANT. [Suspect]
     Active Substance: FULVESTRANT
     Dosage: 500 MG, QMO
     Route: 030
     Dates: start: 20180517
  52. FULVESTRANT. [Suspect]
     Active Substance: FULVESTRANT
     Dosage: 500 MG, QMO
     Route: 030
     Dates: start: 20180724
  53. FULVESTRANT. [Suspect]
     Active Substance: FULVESTRANT
     Dosage: 500 MG, QMO
     Route: 030
     Dates: start: 20190211
  54. FULVESTRANT. [Suspect]
     Active Substance: FULVESTRANT
     Dosage: 500 MG, QMO
     Route: 030
     Dates: start: 20190731
  55. FULVESTRANT. [Suspect]
     Active Substance: FULVESTRANT
     Dosage: 500 MG, QMO
     Route: 030
     Dates: start: 20190927
  56. FULVESTRANT. [Suspect]
     Active Substance: FULVESTRANT
     Dosage: 500 MG, QMO
     Route: 030
     Dates: start: 20200316
  57. TRASTUZUMAB. [Concomitant]
     Active Substance: TRASTUZUMAB
     Dosage: 600 MG (EVERY 21 DAYS)
     Route: 058
     Dates: start: 20190328
  58. TRASTUZUMAB. [Concomitant]
     Active Substance: TRASTUZUMAB
     Dosage: 600 MG (EVERY 21 DAYS)
     Route: 058
     Dates: start: 201908
  59. TRASTUZUMAB. [Concomitant]
     Active Substance: TRASTUZUMAB
     Dosage: 600 MG (EVERY 21 DAYS)
     Route: 058
     Dates: start: 20191211
  60. CAPECITABINE. [Concomitant]
     Active Substance: CAPECITABINE
     Indication: PRODUCT USED FOR UNKNOWN INDICATION
     Dosage: UNK
     Route: 065
     Dates: start: 201404
  61. PROTEIN [Concomitant]
     Active Substance: PROTEIN
     Indication: PRODUCT USED FOR UNKNOWN INDICATION
     Dosage: 1.500 UNK, QD
     Route: 065
     Dates: start: 202006
  62. TYKERB [Suspect]
     Active Substance: LAPATINIB DITOSYLATE
     Dosage: 1000 MG, QD
     Route: 048
     Dates: start: 20180917
  63. TYKERB [Suspect]
     Active Substance: LAPATINIB DITOSYLATE
     Dosage: 1000 MG, QD
     Route: 048
     Dates: start: 20190527
  64. TYKERB [Suspect]
     Active Substance: LAPATINIB DITOSYLATE
     Dosage: UNK, QD (DAILY AT FASTING)
     Route: 048
     Dates: end: 202003
  65. FULVESTRANT. [Suspect]
     Active Substance: FULVESTRANT
     Dosage: 500 MG, QMO
     Route: 030
     Dates: start: 20170830
  66. FULVESTRANT. [Suspect]
     Active Substance: FULVESTRANT
     Dosage: 500 MG, QMO
     Route: 030
     Dates: start: 20180321
  67. OMEPRAZOLE. [Concomitant]
     Active Substance: OMEPRAZOLE
     Indication: GASTRITIS
     Dosage: 20 MG, QD
     Route: 048
     Dates: start: 2018
  68. TRASTUZUMAB. [Concomitant]
     Active Substance: TRASTUZUMAB
     Dosage: 600 MG 600 MG (EVERY 21 DAYS)
     Route: 058
     Dates: start: 20170921
  69. TRASTUZUMAB. [Concomitant]
     Active Substance: TRASTUZUMAB
     Dosage: 600 MG (EVERY 21 DAYS)
     Route: 058
     Dates: start: 20180515
  70. TRASTUZUMAB. [Concomitant]
     Active Substance: TRASTUZUMAB
     Dosage: 600 MG (EVERY 21 DAYS)
     Route: 058
     Dates: start: 20181029
  71. TRASTUZUMAB. [Concomitant]
     Active Substance: TRASTUZUMAB
     Dosage: 600 MG (EVERY 21 DAYS)
     Route: 058
     Dates: start: 20191009
  72. TYKERB [Suspect]
     Active Substance: LAPATINIB DITOSYLATE
     Dosage: 1000 MG, QD
     Route: 048
     Dates: start: 20181121
  73. FULVESTRANT. [Suspect]
     Active Substance: FULVESTRANT
     Dosage: 500 MG, QMO
     Route: 030
     Dates: start: 20180827
  74. FULVESTRANT. [Suspect]
     Active Substance: FULVESTRANT
     Dosage: 500 MG, QMO
     Route: 030
     Dates: start: 20190927
  75. CALCIUM CARBONATE. [Concomitant]
     Active Substance: CALCIUM CARBONATE
     Indication: BONE DECALCIFICATION
     Dosage: 600 MG, QD
     Route: 048
     Dates: start: 2018
  76. LOPERAMIDE [Concomitant]
     Active Substance: LOPERAMIDE
     Indication: DIARRHOEA
     Dosage: 2 MG, QD
     Route: 048
     Dates: start: 2018
  77. CALCIUM [Concomitant]
     Active Substance: CALCIUM
     Indication: PRODUCT USED FOR UNKNOWN INDICATION
     Dosage: UNK
     Route: 065
     Dates: start: 20161207
  78. IMIPRAMINE [Concomitant]
     Active Substance: IMIPRAMINE
     Indication: PRODUCT USED FOR UNKNOWN INDICATION
     Dosage: UNK
     Route: 065

REACTIONS (22)
  - Breast cancer [Unknown]
  - Body mass index decreased [Unknown]
  - Pleural thickening [Unknown]
  - Rash [Unknown]
  - Aspartate aminotransferase increased [Unknown]
  - Malignant neoplasm progression [Unknown]
  - Back pain [Unknown]
  - Pulmonary pain [Not Recovered/Not Resolved]
  - Product use issue [Unknown]
  - Bone erosion [Unknown]
  - Vitamin D decreased [Unknown]
  - Scar [Unknown]
  - Lung consolidation [Unknown]
  - Ejection fraction decreased [Unknown]
  - Product supply issue [Unknown]
  - Inappropriate schedule of product administration [Unknown]
  - Musculoskeletal chest pain [Not Recovered/Not Resolved]
  - Blood alkaline phosphatase increased [Unknown]
  - Metastases to bone [Unknown]
  - Chest pain [Not Recovered/Not Resolved]
  - Arthralgia [Unknown]
  - Dizziness [Unknown]

NARRATIVE: CASE EVENT DATE: 20170127
